FAERS Safety Report 19044405 (Version 1)
Quarter: 2021Q1

REPORT INFORMATION
  Report Type: Spontaneous
  Country: US (occurrence: US)
  Receive Date: 20210323
  Receipt Date: 20210323
  Transmission Date: 20210420
  Serious: Yes (Other)
  Sender: FDA-Public Use
  Company Number: None

PATIENT
  Age: 86 Year
  Sex: Female
  Weight: 52.2 kg

DRUGS (8)
  1. OXYCODONE/ACETAMINOPHEN 5/325MG [Concomitant]
  2. FOLIC ACID 1MG [Concomitant]
     Active Substance: FOLIC ACID
  3. VERZENIO [Suspect]
     Active Substance: ABEMACICLIB
     Indication: BREAST CANCER FEMALE
     Route: 048
     Dates: start: 20210126, end: 20210309
  4. ATORVASTATIN 40MG [Concomitant]
     Active Substance: ATORVASTATIN
  5. LOSARTAN 50MG [Concomitant]
     Active Substance: LOSARTAN
  6. ONDANSETRON 8MG [Concomitant]
     Active Substance: ONDANSETRON
  7. PLAVIX [Concomitant]
     Active Substance: CLOPIDOGREL BISULFATE
  8. HUMULIN 70/30 [Concomitant]
     Active Substance: INSULIN HUMAN

REACTIONS (1)
  - Hospice care [None]

NARRATIVE: CASE EVENT DATE: 20210309
